FAERS Safety Report 24194870 (Version 1)
Quarter: 2024Q3

REPORT INFORMATION
  Report Type: Spontaneous
  Country: US (occurrence: US)
  Receive Date: 20240809
  Receipt Date: 20240809
  Transmission Date: 20241017
  Serious: No
  Sender: ASTELLAS
  Company Number: US-ASTELLAS-2024US017335

PATIENT
  Age: 92 Year
  Sex: Male

DRUGS (21)
  1. IZERVAY [Suspect]
     Active Substance: AVACINCAPTAD PEGOL SODIUM
     Indication: Age-related macular degeneration
     Dosage: 2MG/0.1ML, MONTHLY (Q28 DAYS) OS
     Route: 050
     Dates: start: 20240329, end: 20240329
  2. IZERVAY [Suspect]
     Active Substance: AVACINCAPTAD PEGOL SODIUM
     Indication: Age-related macular degeneration
     Dosage: 2MG/0.1ML, MONTHLY (Q28 DAYS) OS
     Route: 050
     Dates: start: 20240329, end: 20240329
  3. IZERVAY [Suspect]
     Active Substance: AVACINCAPTAD PEGOL SODIUM
     Indication: Age-related macular degeneration
     Dosage: 2MG/0.1ML, MONTHLY (Q28 DAYS) OS
     Route: 050
     Dates: start: 20240329, end: 20240329
  4. IZERVAY [Suspect]
     Active Substance: AVACINCAPTAD PEGOL SODIUM
     Indication: Age-related macular degeneration
     Dosage: 2MG/0.1ML, MONTHLY (Q28 DAYS) OS
     Route: 050
     Dates: start: 20240329, end: 20240329
  5. IZERVAY [Suspect]
     Active Substance: AVACINCAPTAD PEGOL SODIUM
     Indication: Age-related macular degeneration
     Dosage: 2MG/0.1ML, MONTHLY (Q28 DAYS) OS
     Route: 050
     Dates: start: 20240329, end: 20240329
  6. IZERVAY [Suspect]
     Active Substance: AVACINCAPTAD PEGOL SODIUM
     Dosage: 2MG/0.1ML, MONTHLY (Q28 DAYS) OD
     Route: 050
     Dates: start: 20240412, end: 20240412
  7. IZERVAY [Suspect]
     Active Substance: AVACINCAPTAD PEGOL SODIUM
     Dosage: 2MG/0.1ML, MONTHLY (Q28 DAYS) OD
     Route: 050
     Dates: start: 20240412, end: 20240412
  8. IZERVAY [Suspect]
     Active Substance: AVACINCAPTAD PEGOL SODIUM
     Dosage: 2MG/0.1ML, MONTHLY (Q28 DAYS) OD
     Route: 050
     Dates: start: 20240412, end: 20240412
  9. IZERVAY [Suspect]
     Active Substance: AVACINCAPTAD PEGOL SODIUM
     Dosage: 2MG/0.1ML, MONTHLY (Q28 DAYS) OD
     Route: 050
     Dates: start: 20240412, end: 20240412
  10. IZERVAY [Suspect]
     Active Substance: AVACINCAPTAD PEGOL SODIUM
     Dosage: 2MG/0.1ML, MONTHLY (Q28 DAYS) OD
     Route: 050
     Dates: start: 20240412, end: 20240412
  11. IZERVAY [Suspect]
     Active Substance: AVACINCAPTAD PEGOL SODIUM
     Dosage: 2MG/0.1ML, MONTHLY (Q28 DAYS) OS
     Route: 050
     Dates: start: 20240426, end: 20240426
  12. IZERVAY [Suspect]
     Active Substance: AVACINCAPTAD PEGOL SODIUM
     Dosage: 2MG/0.1ML, MONTHLY (Q28 DAYS) OS
     Route: 050
     Dates: start: 20240426, end: 20240426
  13. IZERVAY [Suspect]
     Active Substance: AVACINCAPTAD PEGOL SODIUM
     Dosage: 2MG/0.1ML, MONTHLY (Q28 DAYS) OS
     Route: 050
     Dates: start: 20240426, end: 20240426
  14. IZERVAY [Suspect]
     Active Substance: AVACINCAPTAD PEGOL SODIUM
     Dosage: 2MG/0.1ML, MONTHLY (Q28 DAYS) OS
     Route: 050
     Dates: start: 20240426, end: 20240426
  15. IZERVAY [Suspect]
     Active Substance: AVACINCAPTAD PEGOL SODIUM
     Dosage: 2MG/0.1ML, MONTHLY (Q28 DAYS) OS
     Route: 050
     Dates: start: 20240426, end: 20240426
  16. IZERVAY [Suspect]
     Active Substance: AVACINCAPTAD PEGOL SODIUM
     Dosage: 2MG/0.1ML, MONTHLY (Q28 DAYS) OD
     Route: 050
     Dates: start: 20240510, end: 20240510
  17. IZERVAY [Suspect]
     Active Substance: AVACINCAPTAD PEGOL SODIUM
     Dosage: 2MG/0.1ML, MONTHLY (Q28 DAYS) OD
     Route: 050
     Dates: start: 20240510, end: 20240510
  18. IZERVAY [Suspect]
     Active Substance: AVACINCAPTAD PEGOL SODIUM
     Dosage: 2MG/0.1ML, MONTHLY (Q28 DAYS) OD
     Route: 050
     Dates: start: 20240510, end: 20240510
  19. IZERVAY [Suspect]
     Active Substance: AVACINCAPTAD PEGOL SODIUM
     Dosage: 2MG/0.1ML, MONTHLY (Q28 DAYS) OD
     Route: 050
     Dates: start: 20240510, end: 20240510
  20. IZERVAY [Suspect]
     Active Substance: AVACINCAPTAD PEGOL SODIUM
     Dosage: 2MG/0.1ML, MONTHLY (Q28 DAYS) OD
     Route: 050
     Dates: start: 20240510, end: 20240510
  21. BETADINE [Suspect]
     Active Substance: POVIDONE-IODINE
     Indication: Sterilisation
     Dosage: UNK UNK, UNKNOWN FREQ.
     Route: 065

REACTIONS (6)
  - Ocular discomfort [Unknown]
  - Chills [Recovered/Resolved]
  - Night sweats [Recovered/Resolved]
  - Eye pain [Recovered/Resolved]
  - Blepharitis [Unknown]
  - Conjunctival hyperaemia [Unknown]

NARRATIVE: CASE EVENT DATE: 20240413
